FAERS Safety Report 9818538 (Version 2)
Quarter: 2014Q1

REPORT INFORMATION
  Report Type: Report from Study
  Country: NO (occurrence: NO)
  Receive Date: 20140115
  Receipt Date: 20140115
  Transmission Date: 20141002
  Serious: Yes (Death, Hospitalization)
  Sender: FDA-Public Use
  Company Number: NO-CELGENEUS-122-21880-10071032

PATIENT
  Sex: 0

DRUGS (4)
  1. REVLIMID [Suspect]
     Indication: MANTLE CELL LYMPHOMA
     Route: 048
     Dates: start: 20100622, end: 20100712
  2. REVLIMID [Suspect]
     Route: 048
  3. BENDAMUSTINE [Suspect]
     Indication: MANTLE CELL LYMPHOMA
     Route: 065
     Dates: start: 20100622
  4. RITUXIMAB [Suspect]
     Indication: MANTLE CELL LYMPHOMA
     Route: 065
     Dates: start: 20100622

REACTIONS (7)
  - Bone marrow failure [Fatal]
  - Blood creatinine increased [Recovered/Resolved]
  - Rash generalised [Recovered/Resolved]
  - Hypotension [Not Recovered/Not Resolved]
  - Pyrexia [Recovered/Resolved]
  - Polyneuropathy [Recovered/Resolved]
  - Oedema peripheral [Recovered/Resolved]
